FAERS Safety Report 25435302 (Version 1)
Quarter: 2025Q2

REPORT INFORMATION
  Report Type: Spontaneous
  Country: US (occurrence: US)
  Receive Date: 20250613
  Receipt Date: 20250613
  Transmission Date: 20250716
  Serious: Yes (Hospitalization, Other)
  Sender: MERCK SHARP & DOHME LLC
  Company Number: US-009507513-2293116

PATIENT
  Age: 19 Year
  Sex: Female

DRUGS (8)
  1. POSACONAZOLE [Suspect]
     Active Substance: POSACONAZOLE
     Indication: Pulmonary paracoccidioidomycosis
     Route: 048
  2. FLUCONAZOLE [Suspect]
     Active Substance: FLUCONAZOLE
     Indication: Pulmonary paracoccidioidomycosis
     Route: 065
  3. DIPHENHYDRAMINE [Concomitant]
     Active Substance: DIPHENHYDRAMINE
     Indication: Type I hypersensitivity
     Route: 030
  4. DIPHENHYDRAMINE [Concomitant]
     Active Substance: DIPHENHYDRAMINE
     Indication: Type I hypersensitivity
     Route: 030
  5. EPINEPHRINE [Concomitant]
     Active Substance: EPINEPHRINE
     Indication: Type I hypersensitivity
     Route: 030
  6. EPINEPHRINE [Concomitant]
     Active Substance: EPINEPHRINE
     Indication: Type I hypersensitivity
     Route: 030
  7. PREDNISOLONE [Concomitant]
     Active Substance: PREDNISOLONE
     Indication: Drug reaction with eosinophilia and systemic symptoms
     Route: 030
  8. METHYLPREDNISOLONE [Concomitant]
     Active Substance: METHYLPREDNISOLONE
     Indication: Type I hypersensitivity
     Route: 042

REACTIONS (4)
  - Drug reaction with eosinophilia and systemic symptoms [Recovered/Resolved]
  - Product use in unapproved indication [Unknown]
  - Type I hypersensitivity [Recovering/Resolving]
  - Cross sensitivity reaction [Recovering/Resolving]
